FAERS Safety Report 15465432 (Version 4)
Quarter: 2019Q2

REPORT INFORMATION
  Report Type: Spontaneous
  Country: JP (occurrence: JP)
  Receive Date: 20181004
  Receipt Date: 20190430
  Transmission Date: 20190711
  Serious: Yes (Life-Threatening, Hospitalization, Disabling, Other)
  Sender: FDA-Public Use
  Company Number: JP-BRISTOL-MYERS SQUIBB COMPANY-BMS-2018-073291

PATIENT
  Age: 52 Year
  Sex: Male
  Weight: 48 kg

DRUGS (7)
  1. RINDERON                           /00008501/ [Suspect]
     Active Substance: BETAMETHASONE
     Indication: PRODUCT USED FOR UNKNOWN INDICATION
     Dosage: 2 MG, UNK
     Route: 048
     Dates: start: 20180713
  2. OPDIVO [Suspect]
     Active Substance: NIVOLUMAB
     Indication: PRODUCT USED FOR UNKNOWN INDICATION
     Dosage: 54.2 MG, UNK
     Route: 065
     Dates: start: 20180823
  3. RINDERON                           /00008501/ [Suspect]
     Active Substance: BETAMETHASONE
     Indication: PRODUCT USED FOR UNKNOWN INDICATION
     Dosage: 4 MG, QD
     Route: 048
     Dates: start: 20180718
  4. RINDERON                           /00008501/ [Suspect]
     Active Substance: BETAMETHASONE
     Indication: BRAIN OEDEMA
     Dosage: 0.5 MG, QD
     Route: 065
     Dates: end: 20180828
  5. E KEPPRA [Concomitant]
     Active Substance: LEVETIRACETAM
     Indication: PRODUCT USED FOR UNKNOWN INDICATION
     Dosage: 1000 MG, BID
     Route: 048
     Dates: start: 20180514
  6. OPDIVO [Suspect]
     Active Substance: NIVOLUMAB
     Indication: MALIGNANT MELANOMA
     Dosage: 54.2 MG, UNK
     Route: 041
     Dates: start: 20180531, end: 20180802
  7. YERVOY [Suspect]
     Active Substance: IPILIMUMAB
     Indication: MALIGNANT MELANOMA
     Dosage: 162.6 MG, UNK
     Route: 041
     Dates: start: 20180531, end: 20180712

REACTIONS (3)
  - Adrenal insufficiency [Not Recovered/Not Resolved]
  - Tumour lysis syndrome [Unknown]
  - Malignant neoplasm progression [Unknown]

NARRATIVE: CASE EVENT DATE: 20180713
